FAERS Safety Report 4596012-8 (Version None)
Quarter: 2005Q1

REPORT INFORMATION
  Report Type: 
  Country: None (occurrence: None)
  Receive Date: 20050302
  Receipt Date: 20050217
  Transmission Date: 20050727
  Serious: Yes (Hospitalization)
  Sender: FDA-Public Use
  Company Number: FR-JNJFOC-20031203790

PATIENT
  Age: 75 Year
  Sex: Female
  Weight: 34 kg

DRUGS (1)
  1. HALDOL [Suspect]
     Indication: DELUSION
     Route: 049
     Dates: start: 19700630, end: 20030416

REACTIONS (6)
  - EXTRAPYRAMIDAL DISORDER [None]
  - GENERAL PHYSICAL HEALTH DETERIORATION [None]
  - PARKINSONISM [None]
  - TARDIVE DYSKINESIA [None]
  - URINARY INCONTINENCE [None]
  - URINARY RETENTION [None]
